FAERS Safety Report 5425180-0 (Version None)
Quarter: 2007Q3

REPORT INFORMATION
  Report Type: 
  Country: None (occurrence: None)
  Receive Date: 20070824
  Receipt Date: 20070816
  Transmission Date: 20080115
  Serious: Yes (Other)
  Sender: FDA-Public Use
  Company Number: GB-ROCHE-436341

PATIENT
  Age: 23 Year
  Sex: Female
  Weight: 58 kg

DRUGS (4)
  1. ISOTRETINOIN [Suspect]
     Indication: ACNE
     Route: 048
     Dates: start: 20060207, end: 20060210
  2. GLYBURIDE [Concomitant]
     Indication: ENDOMETRIOSIS
     Dates: start: 20051201
  3. ZINERYT [Concomitant]
     Indication: ACNE
     Route: 061
     Dates: start: 20050801, end: 20060201
  4. MINOCYCLINE HCL [Concomitant]
     Route: 048

REACTIONS (1)
  - ABORTION INDUCED [None]
